FAERS Safety Report 11022796 (Version 2)
Quarter: 2015Q2

REPORT INFORMATION
  Report Type: Spontaneous
  Country: FR (occurrence: FR)
  Receive Date: 20150413
  Receipt Date: 20150415
  Transmission Date: 20150821
  Serious: Yes (Other)
  Sender: FDA-Public Use
  Company Number: FR-JNJFOC-20150400680

PATIENT

DRUGS (5)
  1. MARAVIROC [Suspect]
     Active Substance: MARAVIROC
     Indication: HIV INFECTION
     Route: 065
  2. EMTRICITABINE W/TENOFOVIR DISOPROXIL FUMARATE [Suspect]
     Active Substance: EMTRICITABINE\TENOFOVIR DISOPROXIL
     Indication: HIV INFECTION
     Dosage: 300 MG/ 200 MG
     Route: 065
  3. DARUNAVIR [Suspect]
     Active Substance: DARUNAVIR
     Indication: HIV INFECTION
     Route: 048
  4. RITONAVIR. [Suspect]
     Active Substance: RITONAVIR
     Indication: HIV INFECTION
     Route: 065
  5. RALTEGRAVIR [Suspect]
     Active Substance: RALTEGRAVIR
     Indication: HIV INFECTION
     Route: 065

REACTIONS (13)
  - Renal colic [Unknown]
  - Papilloma excision [Unknown]
  - Hypophosphataemia [Unknown]
  - Upper respiratory tract infection [Unknown]
  - Secondary syphilis [Unknown]
  - Hepatitis C [Unknown]
  - Depression [Unknown]
  - Lymph gland infection [Unknown]
  - Alanine aminotransferase increased [Unknown]
  - Lung infection [Unknown]
  - Gastrointestinal infection [Unknown]
  - Blood creatine phosphokinase increased [Unknown]
  - Gamma-glutamyltransferase increased [Unknown]
